FAERS Safety Report 4596152-3 (Version None)
Quarter: 2005Q1

REPORT INFORMATION
  Report Type: 
  Country: None (occurrence: None)
  Receive Date: 20050302
  Receipt Date: 20050221
  Transmission Date: 20050727
  Serious: Yes (Other)
  Sender: FDA-Public Use
  Company Number: GB-ROCHE-396168

PATIENT
  Age: 72 Year
  Sex: Male
  Weight: 66.6 kg

DRUGS (14)
  1. TAMIFLU [Suspect]
     Indication: DRUG USE FOR UNKNOWN INDICATION
     Route: 048
     Dates: start: 20050126, end: 20050126
  2. BISACODYL [Concomitant]
     Dosage: DAILY DOSE REPORTED AS 1-2 X 5 MG NOCTE.
  3. CETIRIZINE HCL [Concomitant]
     Dosage: DAILY DOSE REPORTED AS 10 MG NOCTE
  4. CO-AMILOFRUSE [Concomitant]
     Dosage: DAILY DOSE REPORTED AS 5/10 MG MANE
  5. DIAZEPAM [Concomitant]
  6. FLIXOTIDE EVOHALER [Concomitant]
     Route: 055
  7. IPRATROPIUM BROMIDE [Concomitant]
     Dosage: STRENGTH REPORTED AS 250 MCG/2ML
     Route: 055
  8. PHYLLOCONTIN [Concomitant]
     Dosage: DAILY DOSE REPORTED AS 225 MG MANE 450 NOCTE
  9. QUETIAPINE FUMARATE [Concomitant]
     Dosage: DAILY DOSE REPORTED AS 50 MG NOCTE
  10. VENTOLIN [Concomitant]
     Dosage: DOSING REGIMEN: 2 PUFFS TAKEN FOUR TIMES A DAY WHEN REQUIRED.
     Route: 055
  11. SEREVENT [Concomitant]
     Route: 055
  12. AMYLOBARBITONE [Concomitant]
     Dosage: DAILY DOSE REPORTED AS 400 MG NOCTE
  13. VITAMIN B COMPLEX CAP [Concomitant]
  14. NIZATIDINE [Concomitant]

REACTIONS (4)
  - ADVERSE DRUG REACTION [None]
  - FEELING HOT AND COLD [None]
  - PALPITATIONS [None]
  - REFUSAL OF TREATMENT BY PATIENT [None]
